FAERS Safety Report 11723942 (Version 1)
Quarter: 2015Q4

REPORT INFORMATION
  Report Type: Spontaneous
  Country: US (occurrence: US)
  Receive Date: 20151111
  Receipt Date: 20151111
  Transmission Date: 20160304
  Serious: Yes (Hospitalization)
  Sender: FDA-Public Use
  Company Number: US-TURING PHARMACEUTICALS-2015TNG00058

PATIENT
  Age: 16 Year
  Sex: Female

DRUGS (5)
  1. PYRIMETHAMINE [Suspect]
     Active Substance: PYRIMETHAMINE
     Dosage: 25 MG, UNK
  2. TWO OTHER UNKNOWN MEDICATIONS [Concomitant]
     Active Substance: UNSPECIFIED INGREDIENT
  3. AZITHROMYCIN [Concomitant]
     Active Substance: AZITHROMYCIN ANHYDROUS
  4. PYRIMETHAMINE [Suspect]
     Active Substance: PYRIMETHAMINE
     Indication: TOXOPLASMOSIS
     Dosage: UNK
     Dates: start: 201510
  5. LEUCOVORIN. [Concomitant]
     Active Substance: LEUCOVORIN

REACTIONS (4)
  - Headache [Recovered/Resolved]
  - Underdose [Unknown]
  - Arthralgia [Recovered/Resolved]
  - Malaise [None]

NARRATIVE: CASE EVENT DATE: 201510
